FAERS Safety Report 24193599 (Version 1)
Quarter: 2024Q3

REPORT INFORMATION
  Report Type: Spontaneous
  Country: ID (occurrence: ID)
  Receive Date: 20240809
  Receipt Date: 20240809
  Transmission Date: 20241017
  Serious: Yes (Other)
  Sender: RANBAXY
  Company Number: ID-SUN PHARMACEUTICAL INDUSTRIES LTD-2024R1-461607

PATIENT
  Age: 19 Year
  Sex: Female

DRUGS (5)
  1. CHOLECALCIFEROL [Suspect]
     Active Substance: CHOLECALCIFEROL
     Indication: Henoch-Schonlein purpura
     Dosage: UNK
     Route: 065
  2. FEXOFENADINE [Suspect]
     Active Substance: FEXOFENADINE HYDROCHLORIDE
     Indication: Henoch-Schonlein purpura
     Dosage: 120 MILLIGRAM, DAILY
     Route: 065
  3. FOLIC ACID [Suspect]
     Active Substance: FOLIC ACID
     Indication: Henoch-Schonlein purpura
     Dosage: UNK
     Route: 065
  4. METHYLPREDNISOLONE [Suspect]
     Active Substance: METHYLPREDNISOLONE
     Indication: Henoch-Schonlein purpura
     Dosage: 8 MILLIGRAM, BID
     Route: 065
  5. MYCOPHENOLIC ACID [Suspect]
     Active Substance: MYCOPHENOLIC ACID
     Indication: Henoch-Schonlein purpura
     Dosage: 180 MILLIGRAM, BID
     Route: 065

REACTIONS (2)
  - Diffuse alopecia [Recovered/Resolved]
  - Osteoarthritis [Recovered/Resolved]
